FAERS Safety Report 17187009 (Version 1)
Quarter: 2019Q4

REPORT INFORMATION
  Report Type: Spontaneous
  Country: US (occurrence: US)
  Receive Date: 20191220
  Receipt Date: 20191220
  Transmission Date: 20200122
  Serious: No
  Sender: FDA-Public Use
  Company Number: US-TEVA-2019-US-1154699

PATIENT

DRUGS (1)
  1. PRAVASTATIN SODIUM TEVA [Suspect]
     Active Substance: PRAVASTATIN SODIUM
     Route: 065

REACTIONS (3)
  - Product size issue [Unknown]
  - Memory impairment [Unknown]
  - Amnesia [Unknown]
